FAERS Safety Report 9794581 (Version 1)
Quarter: 2014Q1

REPORT INFORMATION
  Report Type: Spontaneous
  Country: DK (occurrence: DK)
  Receive Date: 20140102
  Receipt Date: 20140102
  Transmission Date: 20141002
  Serious: Yes (Other)
  Sender: FDA-Public Use
  Company Number: DK-UCBSA-107031

PATIENT
  Sex: 0

DRUGS (1)
  1. CERTOLIZUMAB PEGOL [Suspect]

REACTIONS (2)
  - Pulmonary fibrosis [Unknown]
  - Infection [Unknown]
